FAERS Safety Report 5962066-7 (Version None)
Quarter: 2008Q4

REPORT INFORMATION
  Report Type: 
  Country: None (occurrence: None)
  Receive Date: 20081121
  Receipt Date: 20081113
  Transmission Date: 20090506
  Serious: Yes (Hospitalization, Other)
  Sender: FDA-Public Use
  Company Number: IL-NOVOPROD-278868

PATIENT
  Age: 82 Year
  Sex: Male
  Weight: 60 kg

DRUGS (14)
  1. LEVEMIR [Suspect]
     Indication: INSULIN-REQUIRING TYPE 2 DIABETES MELLITUS
     Dosage: 10 IU, QD
     Dates: start: 20080801, end: 20081001
  2. LEVEMIR [Suspect]
     Dosage: 6 IU, QD
     Dates: start: 20081001
  3. REPAGLINIDE [Concomitant]
     Dosage: .5 MG, BID
  4. IRON [Concomitant]
  5. ACARBOSE [Concomitant]
     Dosage: 100 MG, BID
  6. SIMVASTATIN [Concomitant]
     Dosage: 10 MG, QD
  7. ASPIRIN [Concomitant]
     Dosage: 100 MG, QD
  8. DILTIAZEM HCL [Concomitant]
     Dosage: 240 MG, QD
  9. ISOSORBIDE MONONITRATE [Concomitant]
     Dosage: 20 MG, QD
  10. OXYBUTIN [Concomitant]
     Dosage: 5 MG, TID
  11. TAMSULOSIN HCL [Concomitant]
     Dosage: .4 MG, QD
  12. ACETAMINOPHEN [Concomitant]
     Dosage: 500 MG, PRN
  13. FUROSEMIDE [Concomitant]
     Dosage: 40 MG, BID
  14. PAROXETIN                          /00830801/ [Concomitant]
     Dosage: 20 MG, QD

REACTIONS (7)
  - ERYTHEMA [None]
  - FATIGUE [None]
  - GAIT DISTURBANCE [None]
  - HYPOGLYCAEMIC UNCONSCIOUSNESS [None]
  - OEDEMA PERIPHERAL [None]
  - PAIN IN EXTREMITY [None]
  - TESTICULAR SWELLING [None]
